FAERS Safety Report 23526004 (Version 5)
Quarter: 2025Q3

REPORT INFORMATION
  Report Type: Report from Study
  Country: IN (occurrence: IN)
  Receive Date: 20240215
  Receipt Date: 20250910
  Transmission Date: 20251020
  Serious: Yes (Other)
  Sender: NOVARTIS
  Company Number: IN-002147023-NVSC2024IN028840

PATIENT
  Age: 60 Year
  Sex: Female

DRUGS (4)
  1. RIBOCICLIB [Suspect]
     Active Substance: RIBOCICLIB
     Indication: Breast cancer
     Dosage: 600 MG, QD (ONCE DAILY)
     Route: 048
     Dates: start: 20230630
  2. RIBOCICLIB [Suspect]
     Active Substance: RIBOCICLIB
     Indication: Breast cancer metastatic
  3. RIBOCICLIB [Suspect]
     Active Substance: RIBOCICLIB
     Indication: Hormone receptor positive HER2 negative breast cancer
  4. DENOSUMAB [Concomitant]
     Active Substance: DENOSUMAB
     Indication: Product used for unknown indication
     Dosage: 100 MG (1TABLET PER DAY)
     Route: 065
     Dates: start: 2018

REACTIONS (11)
  - Breast mass [Recovering/Resolving]
  - Invasive breast carcinoma [Unknown]
  - Metastases to bone [Unknown]
  - Metastases to lymph nodes [Unknown]
  - Blood pressure systolic increased [Unknown]
  - Retracted nipple [Recovering/Resolving]
  - Bone lesion [Recovering/Resolving]
  - Pleural effusion [Recovering/Resolving]
  - Eastern Cooperative Oncology Group performance status abnormal [Unknown]
  - Hilar lymphadenopathy [Unknown]
  - Therapy partial responder [Unknown]

NARRATIVE: CASE EVENT DATE: 20230601
